FAERS Safety Report 12268925 (Version 1)
Quarter: 2016Q2

REPORT INFORMATION
  Report Type: Spontaneous
  Country: US (occurrence: US)
  Receive Date: 20160414
  Receipt Date: 20160414
  Transmission Date: 20160815
  Serious: Yes (Other)
  Sender: FDA-Public Use
  Company Number: US-PFIZER INC-2016203137

PATIENT
  Age: 53 Year
  Sex: Female

DRUGS (23)
  1. ALBUTEROL SULFATE HFA [Concomitant]
     Dosage: 2 DF, AS NEEDED (108 (90 BASE-) MCG/ACT AEROSOL SOLUTION/EVERY 4 HRS)
  2. IBUPROFEN. [Concomitant]
     Active Substance: IBUPROFEN
     Dosage: 800 MG, 3X/DAY
     Route: 048
  3. CLONIDINE HCL [Concomitant]
     Active Substance: CLONIDINE HYDROCHLORIDE
     Indication: HYPERTENSION
     Dosage: 0.1 MG, 1X/DAY
  4. OMEPRAZOLE. [Concomitant]
     Active Substance: OMEPRAZOLE
     Dosage: 20 MG, 2X/DAY
     Route: 048
  5. LISINOPRIL-HYDROCHLOROTHIAZIDE [Concomitant]
     Active Substance: HYDROCHLOROTHIAZIDE\LISINOPRIL
     Dosage: 1 DF, 1X/DAY (AM) LISINOPRIL- 20MG, HYDROCHLOROTHIAZIDE- 25MG)
     Route: 048
  6. IRON [Concomitant]
     Active Substance: IRON
     Dosage: 1 DF, 2X/DAY
  7. DULERA [Concomitant]
     Active Substance: FORMOTEROL FUMARATE DIHYDRATE\MOMETASONE FUROATE
     Dosage: 1 DF, 2X/DAY (100-5 MCG/ACT AEROSOL 1INH )/ (  FORMOTEROL FUMARATE-5MCG, MOMETASONE FUROATE-100MCG)
  8. SINGULAIR [Concomitant]
     Active Substance: MONTELUKAST SODIUM
     Dosage: 10 MG, 1X/DAY (IN THE EVENING )
     Route: 048
  9. TRAMADOL HCL [Concomitant]
     Active Substance: TRAMADOL HYDROCHLORIDE
     Indication: PAIN
     Dosage: 50 MG, AS NEEDED (EVERY 8 HRS PRN )
  10. PROMETHAZINE HCL [Concomitant]
     Active Substance: PROMETHAZINE HYDROCHLORIDE
     Indication: NAUSEA
     Dosage: 25 MG, AS NEEDED (Q 6 HRS)
  11. LOMOTIL [Concomitant]
     Active Substance: ATROPINE SULFATE\DIPHENOXYLATE HYDROCHLORIDE
     Indication: DIARRHOEA
     Dosage: 1 DF, AS NEEDED (ATROPINE SULFATE-0.025MG, DIPHENOXYLATE HYDROCHLORIDE- 2.5MG)/FOUR TIMES A DAY PRN
  12. CLARITIN [Concomitant]
     Active Substance: LORATADINE
     Dosage: 10 MG, 1X/DAY
     Route: 048
  13. ESTROVEN [Concomitant]
     Active Substance: DIETARY SUPPLEMENT
     Dosage: UNK
  14. CYMBALTA [Concomitant]
     Active Substance: DULOXETINE HYDROCHLORIDE
     Dosage: 60 MG, 1X/DAY
     Route: 048
  15. PERCOCET [Concomitant]
     Active Substance: ACETAMINOPHEN\OXYCODONE HYDROCHLORIDE
     Dosage: 1 DF, AS NEEDED BID (OXYCODONE HYDROCHLORIDE-7.5 MG,  PARACETAMOL-325 MG)/ BID
     Route: 048
  16. ALBUTEROL SULFATE. [Concomitant]
     Active Substance: ALBUTEROL SULFATE
     Dosage: UNK MG/ML, 3X/DAY (2.5 MG/3ML) 0.083%)
  17. CYCLOBENZAPRINE HCL [Concomitant]
     Active Substance: CYCLOBENZAPRINE HYDROCHLORIDE
     Dosage: 5 MG, UNK (QD - TID)
  18. CRESTOR [Concomitant]
     Active Substance: ROSUVASTATIN CALCIUM
     Dosage: 10 MG, 1X/DAY
     Route: 048
  19. WELLBUTRIN XL [Concomitant]
     Active Substance: BUPROPION HYDROCHLORIDE
     Dosage: 150 MG, 1X/DAY (IN THE MORNING )
     Route: 048
  20. OXYGEN. [Concomitant]
     Active Substance: OXYGEN
     Dosage: 2 L, 1X/DAY ( QHS)
  21. LYRICA [Suspect]
     Active Substance: PREGABALIN
     Indication: PAIN MANAGEMENT
     Dosage: 300 MG, 3X/DAY
     Route: 048
  22. METFORMIN HYDROCHLORIDE. [Concomitant]
     Active Substance: METFORMIN HYDROCHLORIDE
     Dosage: 500 MG, 1X/DAY (1 TABLET WITH EVENING MEAL)
  23. VITAMIN D [Concomitant]
     Active Substance: CHOLECALCIFEROL
     Dosage: 2000 IU, 2X/DAY

REACTIONS (6)
  - Breath sounds abnormal [Unknown]
  - Staphylococcal infection [Unknown]
  - Asthma [Unknown]
  - Overdose [Unknown]
  - Pneumonia [Unknown]
  - Sepsis [Unknown]
